FAERS Safety Report 24317922 (Version 1)
Quarter: 2024Q3

REPORT INFORMATION
  Report Type: Spontaneous
  Country: PT (occurrence: PT)
  Receive Date: 20240913
  Receipt Date: 20240913
  Transmission Date: 20241016
  Serious: Yes (Other)
  Sender: FRESENIUS KABI
  Company Number: None

PATIENT
  Age: 41 Year
  Sex: Female

DRUGS (4)
  1. FENTANYL [Suspect]
     Active Substance: FENTANYL\FENTANYL CITRATE
     Indication: Gynaecological examination
     Dosage: SINGLE DOSE?FORM OF ADMIN: SOLUTION FOR INJECTION
     Route: 042
     Dates: start: 20190710, end: 20190710
  2. ATRACURIUM BESYLATE [Suspect]
     Active Substance: ATRACURIUM BESYLATE
     Indication: Gynaecological examination
     Dosage: SINGLE DOSE?FOA-SOLUTION FOR INJECTION
     Route: 042
     Dates: start: 20190710, end: 20190710
  3. Chlorohexidine ESP [Concomitant]
     Indication: Product used for unknown indication
     Dosage: FOA-CUTANEOUS SOLUTION
     Route: 061
  4. ROCURONIUM BROMIDE [Concomitant]
     Indication: Product used for unknown indication
     Route: 042

REACTIONS (1)
  - Urticaria [Recovered/Resolved]

NARRATIVE: CASE EVENT DATE: 20190710
